FAERS Safety Report 5207231-1 (Version None)
Quarter: 2007Q1

REPORT INFORMATION
  Report Type: 
  Country: None (occurrence: None)
  Receive Date: 20070112
  Receipt Date: 20070108
  Transmission Date: 20070707
  Serious: Yes (Life-Threatening, Hospitalization, Disabling)
  Sender: FDA-Public Use
  Company Number: 2006CG01435

PATIENT
  Age: 803 Month
  Sex: Male
  Weight: 78 kg

DRUGS (13)
  1. NEXIUM [Suspect]
     Indication: PROPHYLAXIS AGAINST GASTROINTESTINAL ULCER
     Route: 048
     Dates: start: 20051101, end: 20051201
  2. NEXIUM [Suspect]
     Route: 048
     Dates: start: 20060221, end: 20060317
  3. TILCOTIL [Concomitant]
     Indication: OSTEOARTHRITIS
     Dates: start: 20051101, end: 20051201
  4. TILCOTIL [Concomitant]
     Dates: start: 20060221, end: 20060327
  5. PLAVIX [Concomitant]
     Indication: ANTICOAGULANT THERAPY
     Dates: start: 20050601, end: 20060401
  6. LODALES [Concomitant]
     Indication: HYPERCHOLESTEROLAEMIA
     Dates: start: 19940101, end: 20060301
  7. CHONDROSULF [Concomitant]
     Indication: OSTEOARTHRITIS
     Route: 048
     Dates: start: 20051201, end: 20060101
  8. GRANIONS DE CUIVRE [Concomitant]
     Indication: OSTEOARTHRITIS
     Dates: start: 20051201, end: 20060101
  9. GRANIONS D'OR [Concomitant]
     Indication: OSTEOARTHRITIS
     Dates: start: 20051201, end: 20060101
  10. GRANIONS DE SELENIUM [Concomitant]
     Indication: OSTEOARTHRITIS
     Dates: start: 20051201, end: 20060101
  11. SYNEDIL [Concomitant]
     Dates: start: 20060111, end: 20060301
  12. CREON [Concomitant]
     Dates: start: 20060111, end: 20060209
  13. COLCHICINE [Concomitant]
     Indication: OSTEOARTHRITIS
     Dates: start: 20060221, end: 20060301

REACTIONS (1)
  - AMYOTROPHIC LATERAL SCLEROSIS [None]
